FAERS Safety Report 23879365 (Version 1)
Quarter: 2024Q2

REPORT INFORMATION
  Report Type: Spontaneous
  Country: US (occurrence: None)
  Receive Date: 20240520
  Receipt Date: 20240520
  Transmission Date: 20240716
  Serious: No
  Sender: FDA-Public Use
  Company Number: None

PATIENT
  Sex: Female

DRUGS (2)
  1. TREMFYA [Suspect]
     Active Substance: GUSELKUMAB
     Indication: Psoriasis
     Dosage: OTHER QUANTITY : 1 PEN ;?FREQUENCY : AS DIRECTED;?
     Route: 058
     Dates: start: 202404
  2. SPRYCEL [Concomitant]

REACTIONS (1)
  - Fatigue [None]
